FAERS Safety Report 5509808-2 (Version None)
Quarter: 2007Q4

REPORT INFORMATION
  Report Type: 
  Country: None (occurrence: None)
  Receive Date: 20071108
  Receipt Date: 20071029
  Transmission Date: 20080405
  Serious: Yes (Hospitalization)
  Sender: FDA-Public Use
  Company Number: US-JNJFOC-20071007682

PATIENT
  Sex: Female

DRUGS (4)
  1. REMICADE [Suspect]
  2. REMICADE [Suspect]
     Indication: SWEAT GLAND INFECTION
  3. REMICADE [Suspect]
     Indication: ARTHRITIS
  4. INSULIN [Concomitant]

REACTIONS (2)
  - CARDIAC VALVE VEGETATION [None]
  - ENDOCARDITIS BACTERIAL [None]
